FAERS Safety Report 10142492 (Version 1)
Quarter: 2014Q2

REPORT INFORMATION
  Report Type: Spontaneous
  Country: CA (occurrence: CA)
  Receive Date: 20140430
  Receipt Date: 20140430
  Transmission Date: 20141212
  Serious: Yes (Hospitalization)
  Sender: FDA-Public Use
  Company Number: CA-009507513-1404CAN014673

PATIENT
  Age: 63 Year
  Sex: Female

DRUGS (6)
  1. ISENTRESS [Suspect]
     Dosage: UNK
     Route: 065
  2. KIVEXA [Suspect]
     Dosage: UNK
     Route: 048
  3. CALCIUM (UNSPECIFIED) (+) VITAMIN D (UNSPECIFIED) [Concomitant]
     Dosage: UNK
  4. VITAMINS (UNSPECIFIED) [Concomitant]
     Dosage: UNK
  5. NEXIUM [Concomitant]
     Dosage: UNK
  6. VALTREX [Concomitant]
     Dosage: UNK
     Route: 048

REACTIONS (11)
  - Oral mucosal erythema [Unknown]
  - Tracheal pain [Unknown]
  - Oral pruritus [Unknown]
  - Skin burning sensation [Unknown]
  - Dysgeusia [Unknown]
  - Oral discomfort [Unknown]
  - Migraine [Unknown]
  - Erythema [Unknown]
  - Pruritus [Unknown]
  - Dyspepsia [Unknown]
  - Headache [Unknown]
